FAERS Safety Report 5268265-4 (Version None)
Quarter: 2007Q1

REPORT INFORMATION
  Report Type: 
  Country: None (occurrence: None)
  Receive Date: 20070314
  Receipt Date: 20070314
  Transmission Date: 20070707
  Serious: Yes (Death, Hospitalization)
  Sender: FDA-Public Use
  Company Number: None

PATIENT
  Age: 72 Year
  Sex: Male
  Weight: 60.782 kg

DRUGS (15)
  1. GEMCITABINE [Suspect]
     Indication: NON-SMALL CELL LUNG CANCER
     Dosage: 1200 MG/M2 DAYS 1 + 8 Q 21 DS IV DRIP
     Route: 041
     Dates: start: 20070220, end: 20070220
  2. LONIDINE HCL [Concomitant]
  3. EPOETIN ALFA,RECOMBINANT [Concomitant]
  4. FELODIPINE [Concomitant]
  5. FERROUS SULFATE [Concomitant]
  6. FUROSEMIDE [Concomitant]
  7. GLIPIZIDE [Concomitant]
  8. IPRATROPIUM/AEROSOL [Concomitant]
  9. LEVALBUTEROL TART [Concomitant]
  10. METOCLOPRAMIDE HCL [Concomitant]
  11. MS CONTIN [Concomitant]
  12. MORPHINE SULFATE [Concomitant]
  13. OMEPRAZOLE [Concomitant]
  14. ONDANSETRON [Concomitant]
  15. OXYCODONE/ACETAMINOPHEN [Concomitant]

REACTIONS (1)
  - MENTAL STATUS CHANGES [None]
